FAERS Safety Report 8555380 (Version 3)
Quarter: 2013Q1

REPORT INFORMATION
  Report Type: Spontaneous
  Country: US (occurrence: US)
  Receive Date: 20120510
  Receipt Date: 20130102
  Transmission Date: 20140127
  Serious: Yes (Hospitalization, Other)
  Sender: FDA-Public Use
  Company Number: US-BAYER-2012-041651

PATIENT
  Age: 44 Year
  Sex: Female
  Weight: 68.93 kg

DRUGS (2)
  1. YAZ [Suspect]
     Indication: PREMENSTRUAL SYNDROME
     Dosage: UNK
     Dates: start: 200709, end: 200912
  2. PROTONIX [Concomitant]
     Dosage: 40 MG, QAM
     Route: 048

REACTIONS (6)
  - Gallbladder injury [None]
  - Biliary dyskinesia [None]
  - Asthenia [None]
  - Pain [None]
  - Injury [None]
  - Emotional distress [None]
